FAERS Safety Report 6627139-4 (Version None)
Quarter: 2010Q1

REPORT INFORMATION
  Report Type: 
  Country: None (occurrence: None)
  Receive Date: 20100311
  Receipt Date: 20091023
  Transmission Date: 20100710
  Serious: No
  Sender: FDA-Public Use
  Company Number: A0811519A

PATIENT
  Age: 51 Year
  Sex: Male

DRUGS (1)
  1. NICORETTE [Suspect]
     Dates: start: 20091012, end: 20091012

REACTIONS (2)
  - NICOTINE DEPENDENCE [None]
  - PRODUCT QUALITY ISSUE [None]
